FAERS Safety Report 5839994-6 (Version None)
Quarter: 2008Q3

REPORT INFORMATION
  Report Type: 
  Country: None (occurrence: None)
  Receive Date: 20080808
  Receipt Date: 20080808
  Transmission Date: 20090109
  Serious: Yes (Other)
  Sender: FDA-Public Use
  Company Number: None

PATIENT
  Sex: Female
  Weight: 83.4619 kg

DRUGS (2)
  1. ORTHO-CEPT [Suspect]
     Indication: CONTRACEPTION
     Dosage: ONE QD 047
  2. ORTHO-CEPT [Suspect]
     Indication: MENORRHAGIA
     Dosage: ONE QD 047

REACTIONS (2)
  - METRORRHAGIA [None]
  - PHARMACEUTICAL PRODUCT COMPLAINT [None]
